FAERS Safety Report 8085071-6 (Version None)
Quarter: 2012Q1

REPORT INFORMATION
  Report Type: 
  Country: None (occurrence: None)
  Receive Date: 20120128
  Receipt Date: 20110318
  Transmission Date: 20120608
  Serious: No
  Sender: FDA-Public Use
  Company Number: US-ABBOTT-11P-163-0713054-00

PATIENT
  Weight: 52.21 kg

DRUGS (3)
  1. MOBIC [Concomitant]
     Indication: PRODUCT USED FOR UNKNOWN INDICATION
  2. HUMIRA [Suspect]
     Indication: RHEUMATOID ARTHRITIS
     Dates: end: 20110101
  3. HUMIRA [Suspect]
     Dates: start: 20110315

REACTIONS (2)
  - PAIN IN EXTREMITY [None]
  - ABASIA [None]
